FAERS Safety Report 8861225 (Version 2)
Quarter: 2012Q4

REPORT INFORMATION
  Report Type: 
  Country: US (occurrence: US)
  Receive Date: 20121026
  Receipt Date: 20121213
  Transmission Date: 20130627
  Serious: Yes (Other)
  Sender: FDA-Public Use
  Company Number: US-PFIZER INC-2012267143

PATIENT
  Age: 70 Year
  Sex: Female
  Weight: 141.95 kg

DRUGS (16)
  1. TORISEL [Suspect]
     Indication: RENAL CANCER
     Dosage: 25 mg, weekly
     Route: 042
     Dates: start: 20120913, end: 20121018
  2. ZYRTEC [Concomitant]
     Dosage: UNK
  3. IRON [Concomitant]
     Dosage: UNK
     Route: 042
  4. FOLIC ACID [Concomitant]
     Dosage: 1 mg, 1x/day
  5. FLUOXETINE [Concomitant]
     Dosage: 20 mg, 1x/day
  6. ZOCOR [Concomitant]
     Dosage: 40 mg, 1x/day
  7. METFORMIN [Concomitant]
     Dosage: 500 mg, 2x/day
  8. METOPROLOL [Concomitant]
     Dosage: 100 mg, 2x/day
  9. ASPIRIN [Concomitant]
     Dosage: 81 mg, 1x/day
  10. VITAMIN D [Concomitant]
     Dosage: UNK, daily
  11. FISH OIL [Concomitant]
     Dosage: 1200 mg, 1x/day
  12. GLIPIZIDE [Concomitant]
     Dosage: 5 mg, 1x/day
  13. AMLODIPINE [Concomitant]
     Dosage: 10 mg, 1x/day
  14. CENTRUM SILVER [Concomitant]
     Dosage: UNK, daily
  15. OSTEO BI-FLEX [Concomitant]
     Dosage: UNK, daily
  16. CALCIUM PLUS [Concomitant]
     Dosage: UNK, daily

REACTIONS (2)
  - Interstitial lung disease [Unknown]
  - Pneumonitis [Unknown]
